FAERS Safety Report 14552132 (Version 1)
Quarter: 2018Q1

REPORT INFORMATION
  Report Type: Report from Study
  Country: None (occurrence: US)
  Receive Date: 20180220
  Receipt Date: 20180220
  Transmission Date: 20180509
  Serious: Yes (Hospitalization, Other)
  Sender: FDA-Public Use
  Company Number: US-ABBVIE-17K-163-1925219-00

PATIENT
  Sex: Female
  Weight: 134.38 kg

DRUGS (7)
  1. HUMIRA [Suspect]
     Active Substance: ADALIMUMAB
     Route: 058
     Dates: start: 201708, end: 201711
  2. METHOTREXATE. [Concomitant]
     Active Substance: METHOTREXATE
     Indication: PRODUCT USED FOR UNKNOWN INDICATION
  3. FOLIC ACID. [Concomitant]
     Active Substance: FOLIC ACID
     Indication: PRODUCT USED FOR UNKNOWN INDICATION
  4. METHOR [Concomitant]
     Indication: ANKYLOSING SPONDYLITIS
  5. HUMIRA [Suspect]
     Active Substance: ADALIMUMAB
     Indication: ANKYLOSING SPONDYLITIS
     Route: 058
     Dates: start: 20170125, end: 20170421
  6. ATORVASTATIN [Suspect]
     Active Substance: ATORVASTATIN
     Indication: PRODUCT USED FOR UNKNOWN INDICATION
     Route: 065
  7. FLEXERIL [Concomitant]
     Active Substance: CYCLOBENZAPRINE HYDROCHLORIDE
     Indication: PRODUCT USED FOR UNKNOWN INDICATION

REACTIONS (26)
  - Tooth abscess [Recovered/Resolved]
  - Impaired work ability [Not Recovered/Not Resolved]
  - Menorrhagia [Recovered/Resolved]
  - Ocular hyperaemia [Recovered/Resolved]
  - Joint swelling [Unknown]
  - Dysstasia [Not Recovered/Not Resolved]
  - Tenderness [Not Recovered/Not Resolved]
  - Benign breast neoplasm [Unknown]
  - Swelling [Unknown]
  - Therapeutic response shortened [Unknown]
  - Headache [Not Recovered/Not Resolved]
  - Joint range of motion decreased [Unknown]
  - Eye inflammation [Recovered/Resolved]
  - Dyspepsia [Recovered/Resolved]
  - Eye pain [Recovered/Resolved]
  - Pyelonephritis acute [Unknown]
  - Photophobia [Recovered/Resolved]
  - Arthralgia [Unknown]
  - Confusional state [Recovered/Resolved]
  - Fatigue [Not Recovered/Not Resolved]
  - Breast calcifications [Not Recovered/Not Resolved]
  - Joint stiffness [Not Recovered/Not Resolved]
  - Oedema [Unknown]
  - Dry mouth [Not Recovered/Not Resolved]
  - Back pain [Recovered/Resolved]
  - Gastroenteritis viral [Not Recovered/Not Resolved]

NARRATIVE: CASE EVENT DATE: 2017
